FAERS Safety Report 6083621-2 (Version None)
Quarter: 2009Q1

REPORT INFORMATION
  Report Type: 
  Country: None (occurrence: None)
  Receive Date: 20090219
  Receipt Date: 20090209
  Transmission Date: 20090719
  Serious: Yes (Other)
  Sender: FDA-Public Use
  Company Number: SE-ASTRAZENECA-2009SE00718

PATIENT
  Sex: Female

DRUGS (4)
  1. ATACAND [Suspect]
     Indication: HYPERTENSION
     Route: 048
     Dates: start: 20081001
  2. K?VEPENIN [Concomitant]
  3. ACETYLCYSTEINE [Concomitant]
     Indication: INCREASED UPPER AIRWAY SECRETION
     Dosage: 1-2 WHEN NEEDED
  4. PULMICORT-100 [Concomitant]
     Indication: BRONCHITIS CHRONIC
     Dosage: WHEN NEEDED

REACTIONS (2)
  - SENSATION OF FOREIGN BODY [None]
  - SWELLING FACE [None]
